FAERS Safety Report 9218486 (Version 2)
Quarter: 2013Q2

REPORT INFORMATION
  Report Type: Spontaneous
  Country: CO (occurrence: CO)
  Receive Date: 20130409
  Receipt Date: 20130416
  Transmission Date: 20140414
  Serious: Yes (Hospitalization, Other)
  Sender: FDA-Public Use
  Company Number: CO-PFIZER INC-2013105719

PATIENT
  Age: 12 Year
  Sex: Male

DRUGS (1)
  1. DRISTAN TRIPLE ACTION [Suspect]
     Indication: PYREXIA
     Dosage: 1 DF, 1X/DAY
     Route: 048
     Dates: start: 20130401, end: 20130401

REACTIONS (5)
  - Dengue fever [Recovering/Resolving]
  - Pyrexia [Recovering/Resolving]
  - Delirium [Recovering/Resolving]
  - Nervousness [Recovering/Resolving]
  - Tachycardia [Unknown]
